FAERS Safety Report 12431594 (Version 5)
Quarter: 2016Q4

REPORT INFORMATION
  Report Type: Report from Study
  Country: CA (occurrence: CA)
  Receive Date: 20160603
  Receipt Date: 20161123
  Transmission Date: 20170207
  Serious: Yes (Other)
  Sender: FDA-Public Use
  Company Number: CA-BRISTOL-MYERS SQUIBB COMPANY-BMS-2015-067300

PATIENT
  Age: 50 Year
  Sex: Female

DRUGS (4)
  1. ABATACEPT [Suspect]
     Active Substance: ABATACEPT
     Indication: RHEUMATOID ARTHRITIS
     Dosage: 500 MG, Q4WK
     Route: 042
     Dates: start: 20150915
  2. TYLENOL WITH CODEINE [Concomitant]
     Active Substance: ACETAMINOPHEN\CODEINE PHOSPHATE
     Indication: PRODUCT USED FOR UNKNOWN INDICATION
     Route: 065
  3. MICARDIS [Concomitant]
     Active Substance: TELMISARTAN
     Indication: PRODUCT USED FOR UNKNOWN INDICATION
     Route: 065
  4. DICLOFENAC [Concomitant]
     Active Substance: DICLOFENAC
     Indication: PRODUCT USED FOR UNKNOWN INDICATION
     Route: 065

REACTIONS (14)
  - Infusion site pain [Unknown]
  - Contusion [Unknown]
  - Memory impairment [Unknown]
  - Gastric disorder [Unknown]
  - Menorrhagia [Unknown]
  - Asthenia [Unknown]
  - Fall [Unknown]
  - Contusion [Unknown]
  - Amenorrhoea [Unknown]
  - Dizziness [Unknown]
  - Cold sweat [Unknown]
  - Hot flush [Unknown]
  - Uterine leiomyoma [Unknown]
  - Eye infection [Recovering/Resolving]

NARRATIVE: CASE EVENT DATE: 20150928
